FAERS Safety Report 9559320 (Version 2)
Quarter: 2014Q1

REPORT INFORMATION
  Report Type: Spontaneous
  Country: US (occurrence: US)
  Receive Date: 20130927
  Receipt Date: 20140127
  Transmission Date: 20141002
  Serious: Yes (Other)
  Sender: FDA-Public Use
  Company Number: US-ROCHE-1281951

PATIENT
  Age: 50 Year
  Sex: Male
  Weight: 77.18 kg

DRUGS (2)
  1. XOLAIR [Suspect]
     Indication: ASTHMA
     Dosage: .12
     Route: 058
     Dates: start: 20110713
  2. XOLAIR [Suspect]
     Dosage: 1/10 OF THE DOSE
     Route: 058
     Dates: start: 20130923, end: 20130923

REACTIONS (3)
  - Chest discomfort [Recovering/Resolving]
  - Urticaria [Recovering/Resolving]
  - Incorrect dose administered [Unknown]
